FAERS Safety Report 18243029 (Version 1)
Quarter: 2020Q3

REPORT INFORMATION
  Report Type: Spontaneous
  Country: US (occurrence: US)
  Receive Date: 20200908
  Receipt Date: 20200908
  Transmission Date: 20201103
  Serious: Yes (Death)
  Sender: FDA-Public Use
  Company Number: None

PATIENT
  Age: 49 Year
  Sex: Female
  Weight: 44.37 kg

DRUGS (13)
  1. FLONASE [Concomitant]
     Active Substance: FLUTICASONE PROPIONATE
  2. CLARITIN [Concomitant]
     Active Substance: LORATADINE
  3. COLACE [Concomitant]
     Active Substance: DOCUSATE SODIUM
  4. TESSALON [Concomitant]
     Active Substance: BENZONATATE
  5. VITAMIN D [Concomitant]
     Active Substance: VITAMIN D NOS
  6. ATIVAN [Concomitant]
     Active Substance: LORAZEPAM
  7. METOPROLOL TARTRATE. [Concomitant]
     Active Substance: METOPROLOL TARTRATE
  8. ASPIRIN. [Concomitant]
     Active Substance: ASPIRIN
  9. ARIXTRA [Concomitant]
     Active Substance: FONDAPARINUX SODIUM
  10. CLARITIN [Concomitant]
     Active Substance: LORATADINE
  11. CAPECITABINE. [Suspect]
     Active Substance: CAPECITABINE
     Indication: BREAST CANCER
     Route: 048
     Dates: start: 20200619, end: 20200908
  12. ALBUTEROL SULFATE HFA [Concomitant]
     Active Substance: ALBUTEROL SULFATE
  13. LOPERAMIDE HCL [Concomitant]
     Active Substance: LOPERAMIDE HYDROCHLORIDE

REACTIONS (1)
  - Death [None]

NARRATIVE: CASE EVENT DATE: 20200908
